APPROVED DRUG PRODUCT: METHENAMINE HIPPURATE
Active Ingredient: METHENAMINE HIPPURATE
Strength: 1GM
Dosage Form/Route: TABLET;ORAL
Application: A205661 | Product #001 | TE Code: AB
Applicant: AUROBINDO PHARMA LTD
Approved: Jul 5, 2016 | RLD: No | RS: Yes | Type: RX